FAERS Safety Report 13599317 (Version 2)
Quarter: 2017Q2

REPORT INFORMATION
  Report Type: Spontaneous
  Country: US (occurrence: US)
  Receive Date: 20170531
  Receipt Date: 20170627
  Transmission Date: 20170830
  Serious: Yes (Hospitalization)
  Sender: FDA-Public Use
  Company Number: US-TAKEDA-2017MPI004885

PATIENT
  Age: 92 Year
  Sex: Male

DRUGS (18)
  1. LISINOPRIL. [Concomitant]
     Active Substance: LISINOPRIL
     Dosage: UNK
     Route: 065
  2. HYDRALAZINE HCL [Concomitant]
     Active Substance: HYDRALAZINE HYDROCHLORIDE
     Dosage: UNK
     Route: 065
  3. VITAMIN K2                         /00357701/ [Concomitant]
     Dosage: UNK
     Route: 065
  4. AMLODIPINE BESYLATE. [Concomitant]
     Active Substance: AMLODIPINE BESYLATE
     Dosage: UNK
     Route: 065
  5. VALACYCLOVIR HCL [Concomitant]
     Active Substance: VALACYCLOVIR HYDROCHLORIDE
     Dosage: UNK
     Route: 065
  6. KRILL OIL [Concomitant]
     Active Substance: DIETARY SUPPLEMENT
     Dosage: UNK
     Route: 065
  7. ASCORBIC ACID. [Concomitant]
     Active Substance: ASCORBIC ACID
     Dosage: UNK
     Route: 065
  8. VITAMIN D3 [Concomitant]
     Active Substance: CHOLECALCIFEROL
     Dosage: UNK
     Route: 065
  9. HAWTHORN                           /01349301/ [Concomitant]
     Active Substance: HAWTHORN LEAF WITH FLOWER
     Dosage: UNK
     Route: 065
  10. FINASTERIDE. [Concomitant]
     Active Substance: FINASTERIDE
     Dosage: UNK
     Route: 065
  11. FLOMAX [Concomitant]
     Active Substance: TAMSULOSIN HYDROCHLORIDE
     Dosage: UNK
     Route: 065
  12. NINLARO [Suspect]
     Active Substance: IXAZOMIB
     Indication: PLASMA CELL MYELOMA
     Dosage: 3 MG, UNK
     Route: 048
     Dates: start: 20160826
  13. PRESERVISION AREDS [Concomitant]
     Active Substance: MINERALS\VITAMINS
     Dosage: UNK
     Route: 065
  14. CALCITONIN SALMON. [Concomitant]
     Active Substance: CALCITONIN SALMON
     Dosage: UNK
     Route: 065
  15. VITAMIN B COMPLEX [Concomitant]
     Active Substance: CYANOCOBALAMIN\DEXPANTHENOL\NIACINAMIDE\PYRIDOXINE HYDROCHLORIDE\RIBOFLAVIN 5^-PHOSPHATE SODIUM\THIAMINE HYDROCHLORIDE\VITAMIN B COMPLEX
     Dosage: UNK
     Route: 065
  16. OMEGA-3                            /01866101/ [Concomitant]
     Active Substance: OMEGA-3 FATTY ACIDS
     Dosage: UNK
     Route: 065
  17. MULTIVITAMIN                       /07504101/ [Concomitant]
     Active Substance: VITAMINS
     Dosage: UNK
     Route: 065
  18. METOPROLOL TARTRATE. [Concomitant]
     Active Substance: METOPROLOL TARTRATE
     Dosage: UNK
     Route: 065

REACTIONS (1)
  - Femur fracture [Unknown]

NARRATIVE: CASE EVENT DATE: 20170512
